FAERS Safety Report 18496568 (Version 1)
Quarter: 2020Q4

REPORT INFORMATION
  Report Type: Spontaneous
  Country: US (occurrence: US)
  Receive Date: 20201112
  Receipt Date: 20201112
  Transmission Date: 20210114
  Serious: Yes (Death)
  Sender: FDA-Public Use
  Company Number: US-TEVA-2020-US-1847559

PATIENT
  Sex: Male

DRUGS (5)
  1. HEROIN [Suspect]
     Active Substance: DIAMORPHINE
     Route: 065
  2. FENTANYL. [Suspect]
     Active Substance: FENTANYL
     Indication: PRODUCT USE IN UNAPPROVED INDICATION
     Route: 065
  3. OXYCONTIN [Suspect]
     Active Substance: OXYCODONE HYDROCHLORIDE
     Route: 065
  4. DIPHENHYDRAMINE. [Suspect]
     Active Substance: DIPHENHYDRAMINE
     Route: 065
  5. CLONAZEPAM. [Suspect]
     Active Substance: CLONAZEPAM
     Route: 065

REACTIONS (5)
  - Arteriosclerosis [Fatal]
  - Drug dependence [Fatal]
  - Overdose [Fatal]
  - Hypertension [Fatal]
  - Toxicity to various agents [Fatal]
